FAERS Safety Report 7436966-5 (Version None)
Quarter: 2011Q2

REPORT INFORMATION
  Report Type: 
  Country: None (occurrence: None)
  Receive Date: 20110426
  Receipt Date: 20110412
  Transmission Date: 20111010
  Serious: Yes (Hospitalization, Other)
  Sender: FDA-Public Use
  Company Number: CH-PAR PHARMACEUTICAL, INC-2011SCPR002896

PATIENT
  Age: 71 Year
  Sex: Female

DRUGS (3)
  1. ELTROXIN [Concomitant]
     Indication: HYPOTHYROIDISM
     Dosage: 0.1 MG, UNKNOWN
     Route: 065
  2. LITHIUM [Suspect]
     Indication: BIPOLAR II DISORDER
     Dosage: UNK, UNKNOWN
     Route: 065
  3. TRANYLCYPROMINE SULFATE [Suspect]
     Indication: BIPOLAR II DISORDER
     Dosage: 50 MG, PER DAY
     Route: 065

REACTIONS (6)
  - EXTRAPYRAMIDAL DISORDER [None]
  - TOXIC ENCEPHALOPATHY [None]
  - HYPERTENSION [None]
  - NEUROTOXICITY [None]
  - BALANCE DISORDER [None]
  - ATAXIA [None]
